FAERS Safety Report 8449308-3 (Version None)
Quarter: 2012Q2

REPORT INFORMATION
  Report Type: 
  Country: None (occurrence: None)
  Receive Date: 20120619
  Receipt Date: 20120605
  Transmission Date: 20120825
  Serious: No
  Sender: FDA-Public Use
  Company Number: US-ASTRAZENECA-2012SE37510

PATIENT
  Age: 58 Year
  Sex: Male
  Weight: 90.3 kg

DRUGS (10)
  1. ASPIRIN [Concomitant]
  2. EFFEXOR [Concomitant]
  3. PENTOPRAZOLE PROTONIX [Concomitant]
  4. TOPROL-XL [Suspect]
     Route: 048
     Dates: start: 20040201
  5. ACIDOPHILUS PROBIOTIC [Concomitant]
  6. PLAVIX [Concomitant]
  7. PRINIVIL [Suspect]
     Route: 048
     Dates: start: 20040201
  8. ZOVIRAX [Concomitant]
  9. CRESTOR [Suspect]
     Indication: HIGH DENSITY LIPOPROTEIN DECREASED
     Route: 048
     Dates: start: 20120402
  10. LOVAZA [Concomitant]

REACTIONS (5)
  - INTENTIONAL DRUG MISUSE [None]
  - HIGH DENSITY LIPOPROTEIN INCREASED [None]
  - LOW DENSITY LIPOPROTEIN INCREASED [None]
  - BLOOD CHOLESTEROL INCREASED [None]
  - BLOOD TRIGLYCERIDES INCREASED [None]
